FAERS Safety Report 11753417 (Version 1)
Quarter: 2015Q4

REPORT INFORMATION
  Report Type: Spontaneous
  Country: US (occurrence: None)
  Receive Date: 20151118
  Receipt Date: 20151118
  Transmission Date: 20160304
  Serious: Yes (Other)
  Sender: FDA-Public Use
  Company Number: None

PATIENT
  Age: 59 Year
  Sex: Female

DRUGS (1)
  1. HUMIRA [Suspect]
     Active Substance: ADALIMUMAB
     Indication: PSORIATIC ARTHROPATHY
     Route: 058
     Dates: start: 20150805, end: 20151024

REACTIONS (4)
  - Chronic inflammatory demyelinating polyradiculoneuropathy [None]
  - Hypoaesthesia [None]
  - Neuropathy peripheral [None]
  - Paraesthesia [None]

NARRATIVE: CASE EVENT DATE: 20151117
